FAERS Safety Report 10740128 (Version 1)
Quarter: 2015Q1

REPORT INFORMATION
  Report Type: Spontaneous
  Country: US (occurrence: US)
  Receive Date: 20150127
  Receipt Date: 20150127
  Transmission Date: 20150721
  Serious: No
  Sender: FDA-Public Use
  Company Number: US-TEVA-474727USA

PATIENT
  Sex: Female

DRUGS (4)
  1. METOPROLOL XL [Concomitant]
     Active Substance: METOPROLOL
     Dosage: 50 MILLIGRAM DAILY;
  2. METFORMIN [Suspect]
     Active Substance: METFORMIN HYDROCHLORIDE
     Indication: DIABETES MELLITUS
     Dosage: 2000 MILLIGRAM DAILY;
     Route: 048
  3. RAMIPRIL. [Concomitant]
     Active Substance: RAMIPRIL
  4. AMLODIPINE [Concomitant]
     Active Substance: AMLODIPINE BESYLATE
     Dosage: 5 MILLIGRAM DAILY;

REACTIONS (6)
  - Hyperglycaemia [Unknown]
  - Blood glucose increased [Recovering/Resolving]
  - Blood glucose abnormal [Recovering/Resolving]
  - Drug ineffective [Unknown]
  - Somnolence [Unknown]
  - Malaise [Unknown]
